FAERS Safety Report 7299854-3 (Version None)
Quarter: 2011Q1

REPORT INFORMATION
  Report Type: 
  Country: None (occurrence: None)
  Receive Date: 20110217
  Receipt Date: 20110215
  Transmission Date: 20110831
  Serious: Yes (Other)
  Sender: FDA-Public Use
  Company Number: US-PFIZER INC-2010160485

PATIENT
  Sex: Male
  Weight: 32.88 kg

DRUGS (1)
  1. DILANTIN-125 [Suspect]
     Indication: CONVULSION
     Dosage: UNK
     Dates: start: 20030101

REACTIONS (3)
  - ANGIOEDEMA [None]
  - SWOLLEN TONGUE [None]
  - FACE OEDEMA [None]
